FAERS Safety Report 12222995 (Version 1)
Quarter: 2016Q1

REPORT INFORMATION
  Report Type: Spontaneous
  Country: US (occurrence: US)
  Receive Date: 20160330
  Receipt Date: 20160330
  Transmission Date: 20160526
  Serious: No
  Sender: FDA-Public Use
  Company Number: US-PERRIGO-15US011656

PATIENT
  Age: 72 Year
  Sex: Female
  Weight: 54.42 kg

DRUGS (1)
  1. ACETAMINOPHEN. [Suspect]
     Active Substance: ACETAMINOPHEN
     Indication: SCIATICA
     Dosage: 1300 MG, QD
     Route: 048
     Dates: start: 20151028, end: 20151031

REACTIONS (1)
  - Drug ineffective [Unknown]

NARRATIVE: CASE EVENT DATE: 20151028
